FAERS Safety Report 7375480-2 (Version None)
Quarter: 2011Q1

REPORT INFORMATION
  Report Type: 
  Country: None (occurrence: None)
  Receive Date: 20110325
  Receipt Date: 20110318
  Transmission Date: 20110831
  Serious: Yes (Other)
  Sender: FDA-Public Use
  Company Number: GB-PFIZER INC-2011061014

PATIENT
  Sex: Female

DRUGS (1)
  1. GENOTROPIN [Suspect]
     Dosage: UNK

REACTIONS (4)
  - HEADACHE [None]
  - EPISTAXIS [None]
  - DYSARTHRIA [None]
  - POOR QUALITY DRUG ADMINISTERED [None]
